FAERS Safety Report 9626148 (Version 1)
Quarter: 2013Q4

REPORT INFORMATION
  Report Type: Spontaneous
  Country: US (occurrence: None)
  Receive Date: 20131015
  Receipt Date: 20131015
  Transmission Date: 20140711
  Serious: Yes (Other)
  Sender: FDA-Public Use
  Company Number: None

PATIENT
  Age: 52 Year
  Sex: Female
  Weight: 79.38 kg

DRUGS (1)
  1. TOPIRAMATE [Suspect]
     Indication: WEIGHT DECREASED
     Dosage: 50 TO 100 MG TWICE DAILY TAKEN BY MOUTH
     Route: 048
     Dates: start: 20130410, end: 20130507

REACTIONS (12)
  - Dizziness [None]
  - Presyncope [None]
  - Vomiting [None]
  - Dissociation [None]
  - Cognitive disorder [None]
  - Dysgraphia [None]
  - Lethargy [None]
  - Memory impairment [None]
  - Middle insomnia [None]
  - Feeling abnormal [None]
  - Respiratory disorder [None]
  - Chest discomfort [None]
